FAERS Safety Report 6301493-5 (Version None)
Quarter: 2009Q3

REPORT INFORMATION
  Report Type: 
  Country: None (occurrence: None)
  Receive Date: 20090807
  Receipt Date: 20090731
  Transmission Date: 20100115
  Serious: Yes (Other)
  Sender: FDA-Public Use
  Company Number: B0526323A

PATIENT
  Sex: Male

DRUGS (8)
  1. ALKERAN [Suspect]
     Indication: TRANSPLANT
     Dosage: 118MG PER DAY
     Route: 042
     Dates: start: 20080617, end: 20080617
  2. FLUDARA [Concomitant]
     Dosage: 37MG PER DAY
     Route: 065
     Dates: start: 20080612, end: 20080616
  3. FUNGUARD [Concomitant]
     Indication: PROPHYLAXIS
     Dosage: 50MG PER DAY
     Route: 042
     Dates: start: 20080612
  4. KYTRIL [Concomitant]
     Indication: PROPHYLAXIS
     Dosage: 3MG PER DAY
     Route: 042
     Dates: start: 20080617, end: 20080618
  5. ZOVIRAX [Concomitant]
     Indication: PROPHYLAXIS
     Dosage: 1000MG PER DAY
     Route: 048
     Dates: start: 20080612, end: 20080619
  6. CRAVIT [Concomitant]
     Indication: PROPHYLAXIS
     Dosage: 600MG PER DAY
     Route: 048
     Dates: start: 20080612, end: 20080618
  7. PROGRAF [Concomitant]
     Indication: PROPHYLAXIS AGAINST GRAFT VERSUS HOST DISEASE
     Dosage: 1.6MG PER DAY
     Route: 042
     Dates: start: 20080618, end: 20080907
  8. RADIATION [Concomitant]
     Dates: start: 20080618

REACTIONS (4)
  - ARRHYTHMIA [None]
  - ATRIAL FIBRILLATION [None]
  - HEART RATE IRREGULAR [None]
  - TACHYCARDIA [None]
